FAERS Safety Report 14996513 (Version 1)
Quarter: 2018Q2

REPORT INFORMATION
  Report Type: Spontaneous
  Country: US (occurrence: US)
  Receive Date: 20180611
  Receipt Date: 20180611
  Transmission Date: 20180711
  Serious: No
  Sender: FDA-Public Use
  Company Number: US-PFIZER INC-2018235452

PATIENT
  Age: 40 Year
  Sex: Female

DRUGS (3)
  1. GABAPENTIN. [Suspect]
     Active Substance: GABAPENTIN
     Indication: CENTRAL PAIN SYNDROME
     Dosage: 3600 MG (6 TABLETS), DAILY
     Route: 048
     Dates: start: 1998, end: 2017
  2. OXCARBAZEPINE. [Concomitant]
     Active Substance: OXCARBAZEPINE
     Indication: PROPHYLAXIS
  3. OXCARBAZEPINE. [Concomitant]
     Active Substance: OXCARBAZEPINE
     Indication: CENTRAL PAIN SYNDROME
     Dosage: 1800 MG (3 TABLETS), DAILY
     Route: 048
     Dates: end: 2017

REACTIONS (7)
  - Scar [Recovering/Resolving]
  - Pruritus [Recovering/Resolving]
  - Drug hypersensitivity [Unknown]
  - Swelling [Recovering/Resolving]
  - Drug ineffective for unapproved indication [Unknown]
  - Malaise [Recovering/Resolving]
  - Rash [Recovered/Resolved with Sequelae]

NARRATIVE: CASE EVENT DATE: 1998
